FAERS Safety Report 5074377-0 (Version None)
Quarter: 2006Q3

REPORT INFORMATION
  Report Type: 
  Country: None (occurrence: None)
  Receive Date: 20060803
  Receipt Date: 20060719
  Transmission Date: 20061208
  Serious: Yes (Hospitalization)
  Sender: FDA-Public Use
  Company Number: 2006S1006707

PATIENT
  Age: 36 Year
  Sex: Female
  Weight: 78.4723 kg

DRUGS (3)
  1. AMITRIPTYLINE HCL [Suspect]
     Indication: MIGRAINE PROPHYLAXIS
     Dosage: 100 MG QD PO
     Route: 048
     Dates: start: 20040412, end: 20040610
  2. SERTRALINE [Concomitant]
  3. TYLENOL W/ CODEINE NO. 3 [Concomitant]

REACTIONS (1)
  - CHOLECYSTITIS CHRONIC [None]
